FAERS Safety Report 8475749-4 (Version None)
Quarter: 2012Q2

REPORT INFORMATION
  Report Type: 
  Country: None (occurrence: None)
  Receive Date: 20120628
  Receipt Date: 20120625
  Transmission Date: 20120825
  Serious: No
  Sender: FDA-Public Use
  Company Number: US-TEVA-345314USA

PATIENT
  Sex: Female
  Weight: 59.474 kg

DRUGS (2)
  1. TRI-SPRINTEC [Concomitant]
     Indication: DYSMENORRHOEA
  2. PLAN B ONE-STEP [Suspect]
     Indication: POST COITAL CONTRACEPTION
     Dosage: 1.5 MILLIGRAM;
     Route: 048

REACTIONS (1)
  - ABDOMINAL DISTENSION [None]
